FAERS Safety Report 24710639 (Version 1)
Quarter: 2024Q4

REPORT INFORMATION
  Report Type: Other
  Country: CN (occurrence: CN)
  Receive Date: 20241209
  Receipt Date: 20241209
  Transmission Date: 20250115
  Serious: Yes (Life-Threatening, Other)
  Sender: Kanchan Healthcare
  Company Number: CN-Kanchan Healthcare INC-2166736

PATIENT
  Age: 21 Year
  Sex: Male

DRUGS (9)
  1. DEXAMETHASONE [Suspect]
     Active Substance: DEXAMETHASONE
     Indication: Central nervous system leukaemia
  2. CYCLOPHOSPHAMIDE [Suspect]
     Active Substance: CYCLOPHOSPHAMIDE
     Dates: start: 201808
  3. LENALIDOMIDE [Concomitant]
     Active Substance: LENALIDOMIDE
  4. FLUDARABINE [Concomitant]
     Active Substance: FLUDARABINE PHOSPHATE
  5. METHOTREXATE [Concomitant]
     Active Substance: METHOTREXATE
  6. MERCAPTOPURINE [Concomitant]
     Active Substance: MERCAPTOPURINE
  7. CYTARABINE [Concomitant]
     Active Substance: CYTARABINE
  8. EPIRUBICIN HYDROCHLORIDE [Suspect]
     Active Substance: EPIRUBICIN HYDROCHLORIDE
     Dates: start: 201808
  9. VINDESINE [Suspect]
     Active Substance: VINDESINE
     Dates: start: 201808

REACTIONS (2)
  - Myelosuppression [Recovered/Resolved]
  - Infection [Recovered/Resolved]
